FAERS Safety Report 10086827 (Version 2)
Quarter: 2014Q3

REPORT INFORMATION
  Report Type: Report from Study
  Country: US (occurrence: US)
  Receive Date: 20140418
  Receipt Date: 20140703
  Transmission Date: 20150326
  Serious: Yes (Hospitalization)
  Sender: FDA-Public Use
  Company Number: US-GLAXOSMITHKLINE-A1070009A

PATIENT
  Age: 39 Year
  Sex: Female
  Weight: 80 kg

DRUGS (9)
  1. PAXIL [Concomitant]
     Active Substance: PAROXETINE HYDROCHLORIDE
     Dates: start: 20110512
  2. MUPIROCIN. [Concomitant]
     Active Substance: MUPIROCIN
  3. UREA. [Concomitant]
     Active Substance: UREA
  4. ESTRADIOL. [Concomitant]
     Active Substance: ESTRADIOL
  5. LAPATINIB [Suspect]
     Active Substance: LAPATINIB
     Indication: HER-2 POSITIVE BREAST CANCER
     Dosage: 1250MG CYCLIC
     Route: 048
     Dates: start: 20110523
  6. ACETAMINOPHEN. [Concomitant]
     Active Substance: ACETAMINOPHEN
     Dates: start: 20110325
  7. CAPECITABINE [Suspect]
     Active Substance: CAPECITABINE
     Indication: HER-2 POSITIVE BREAST CANCER
     Dosage: 3000MG TWICE PER DAY
     Route: 048
     Dates: start: 20110523
  8. ZOLEDRONIC ACID [Concomitant]
     Active Substance: ZOLEDRONIC ACID
  9. VITAMIN D [Concomitant]
     Active Substance: CHOLECALCIFEROL

REACTIONS (1)
  - Pulmonary embolism [Recovered/Resolved]

NARRATIVE: CASE EVENT DATE: 20120313
